FAERS Safety Report 21395936 (Version 1)
Quarter: 2022Q3

REPORT INFORMATION
  Report Type: Report from Study
  Country: GR (occurrence: GR)
  Receive Date: 20220930
  Receipt Date: 20220930
  Transmission Date: 20221026
  Serious: Yes (Other)
  Sender: FDA-Public Use
  Company Number: GR-TEVA-2022-GR-2077866

PATIENT
  Age: 5 Month

DRUGS (2)
  1. COPAXONE [Suspect]
     Active Substance: GLATIRAMER ACETATE
     Indication: Multiple sclerosis
     Dosage: M-W-F
     Route: 064
     Dates: start: 20180514, end: 20210319
  2. COPAXONE [Suspect]
     Active Substance: GLATIRAMER ACETATE
     Dosage: M-W-F
     Route: 064
     Dates: start: 20220503

REACTIONS (2)
  - COVID-19 [Recovered/Resolved]
  - Foetal exposure during pregnancy [Unknown]

NARRATIVE: CASE EVENT DATE: 20220201
